FAERS Safety Report 8500399-0 (Version None)
Quarter: 2012Q3

REPORT INFORMATION
  Report Type: 
  Country: None (occurrence: None)
  Receive Date: 20120710
  Receipt Date: 20120628
  Transmission Date: 20120928
  Serious: Yes (Hospitalization)
  Sender: FDA-Public Use
  Company Number: FR-FRI-1000036909

PATIENT
  Sex: Male

DRUGS (11)
  1. LORAZEPAM [Concomitant]
  2. GLICLAZIDE [Concomitant]
  3. STABLON [Concomitant]
  4. PLAVIX [Suspect]
     Dosage: 75 MG
     Dates: start: 20120522, end: 20120527
  5. IRBESARTAN AND HYDROCHLOROTHIAZIDE [Concomitant]
  6. NOVORAPID [Concomitant]
  7. CITALOPRAM HYDROBROMIDE [Suspect]
     Dosage: 10 MG
     Route: 048
     Dates: start: 20120521, end: 20120527
  8. MODOPAR [Concomitant]
  9. PRADAXA [Suspect]
     Dosage: 220 MG
     Route: 048
     Dates: start: 20120516, end: 20120527
  10. DEPAKENE [Concomitant]
  11. ATORVASTATIN [Concomitant]

REACTIONS (2)
  - ANAEMIA [None]
  - RECTAL HAEMORRHAGE [None]
